FAERS Safety Report 8002141-9 (Version None)
Quarter: 2011Q4

REPORT INFORMATION
  Report Type: 
  Country: None (occurrence: None)
  Receive Date: 20111222
  Receipt Date: 20111215
  Transmission Date: 20120403
  Serious: No
  Sender: FDA-Public Use
  Company Number: US-B.I. PHARMACEUTICALS,INC./RIDGEFIELD-2011-BP-24819BP

PATIENT
  Age: 65 Year
  Sex: Male

DRUGS (11)
  1. ASPIRIN [Concomitant]
     Indication: CORONARY ARTERY DISEASE
     Dosage: 81 MG
     Route: 048
  2. PRADAXA [Suspect]
     Indication: LABORATORY TEST
  3. CARDIZEM [Concomitant]
     Indication: ATRIAL FIBRILLATION
     Route: 048
  4. HYDROCHLOROTHIAZIDE [Concomitant]
     Indication: HYPERTENSION
     Route: 048
  5. METFORMIN HCL [Concomitant]
     Indication: DIABETES MELLITUS
     Route: 048
  6. LIPITOR [Concomitant]
     Indication: BLOOD CHOLESTEROL INCREASED
     Route: 048
  7. QUINAPRIL [Concomitant]
     Indication: HYPERTENSION
     Route: 048
  8. PRADAXA [Suspect]
     Indication: ATRIAL FIBRILLATION
     Dosage: 300 MG
     Route: 048
     Dates: start: 20111001, end: 20111021
  9. PRADAXA [Suspect]
     Indication: DRUG THERAPY CHANGED
  10. COREG [Concomitant]
     Indication: CORONARY ARTERY DISEASE
     Route: 048
  11. CENTRUM SILVER [Concomitant]
     Indication: SUPPLEMENTATION THERAPY
     Route: 048

REACTIONS (4)
  - GASTROOESOPHAGEAL REFLUX DISEASE [None]
  - THROAT IRRITATION [None]
  - OESOPHAGEAL IRRITATION [None]
  - MELAENA [None]
